FAERS Safety Report 7578817-4 (Version None)
Quarter: 2011Q2

REPORT INFORMATION
  Report Type: 
  Country: None (occurrence: None)
  Receive Date: 20110628
  Receipt Date: 20110618
  Transmission Date: 20111010
  Serious: Yes (Other)
  Sender: FDA-Public Use
  Company Number: US-JNJFOC-20110610659

PATIENT
  Sex: Female

DRUGS (1)
  1. CHILDREN'S SUDAFED PE COLD + COUGH [Suspect]
     Indication: RHINORRHOEA
     Dosage: ONE TEASPOON ONE TIME
     Route: 048
     Dates: start: 20110611, end: 20110611

REACTIONS (12)
  - CRYING [None]
  - BRUXISM [None]
  - OCULAR ICTERUS [None]
  - WRONG DRUG ADMINISTERED [None]
  - FATIGUE [None]
  - RESPIRATORY ARREST [None]
  - PALLOR [None]
  - LISTLESS [None]
  - LIP DISCOLOURATION [None]
  - INSOMNIA [None]
  - TREMOR [None]
  - ARTHRALGIA [None]
